FAERS Safety Report 5035024-7 (Version None)
Quarter: 2006Q2

REPORT INFORMATION
  Report Type: 
  Country: None (occurrence: None)
  Receive Date: 20060519
  Receipt Date: 20060315
  Transmission Date: 20061013
  Serious: No
  Sender: FDA-Public Use
  Company Number: TPA2006A00456

PATIENT
  Age: 97 Year
  Sex: Female

DRUGS (5)
  1. ROZEREM [Suspect]
     Dosage: 8 MG, QHS, PER ORAL
     Route: 048
  2. TEGRETOL [Concomitant]
  3. ATIVAN (LORAZEPAM) (0.5  MILLIGRAM) [Concomitant]
  4. LASIX [Concomitant]
  5. LANOXIN (DIGOXIN) (0.125 MILLIGRAM) [Concomitant]

REACTIONS (1)
  - MIDDLE INSOMNIA [None]
